FAERS Safety Report 11187370 (Version 1)
Quarter: 2015Q2

REPORT INFORMATION
  Report Type: Spontaneous
  Country: US (occurrence: US)
  Receive Date: 20150615
  Receipt Date: 20150615
  Transmission Date: 20150821
  Serious: No
  Sender: FDA-Public Use
  Company Number: US-JNJFOC-20150511812

PATIENT
  Age: 77 Year
  Sex: Male
  Weight: 92.99 kg

DRUGS (3)
  1. NADOLOL. [Concomitant]
     Active Substance: NADOLOL
     Route: 065
  2. LOVASTATIN. [Concomitant]
     Active Substance: LOVASTATIN
     Route: 065
  3. XARELTO [Suspect]
     Active Substance: RIVAROXABAN
     Indication: ANTICOAGULANT THERAPY
     Route: 048

REACTIONS (2)
  - Rhinorrhoea [Not Recovered/Not Resolved]
  - Nasopharyngitis [Not Recovered/Not Resolved]

NARRATIVE: CASE EVENT DATE: 201505
